FAERS Safety Report 9330902 (Version 1)
Quarter: 2013Q2

REPORT INFORMATION
  Report Type: Spontaneous
  Country: DK (occurrence: DK)
  Receive Date: 20130605
  Receipt Date: 20130605
  Transmission Date: 20140414
  Serious: Yes (Other)
  Sender: FDA-Public Use
  Company Number: DK-TEVA-403704ISR

PATIENT
  Age: 52 Year
  Sex: Female
  Weight: 50 kg

DRUGS (1)
  1. EMTHEXATE [Suspect]
     Indication: SKIN CANCER
     Dosage: UNIT: 2.5 MG
     Route: 048
     Dates: start: 20051001

REACTIONS (3)
  - Periodontitis [Unknown]
  - Osteonecrosis of jaw [Not Recovered/Not Resolved]
  - Loose tooth [Unknown]
